FAERS Safety Report 7934167-5 (Version None)
Quarter: 2011Q4

REPORT INFORMATION
  Report Type: 
  Country: None (occurrence: None)
  Receive Date: 20111122
  Receipt Date: 20111120
  Transmission Date: 20120403
  Serious: Yes (Other)
  Sender: FDA-Public Use
  Company Number: US-PFIZER INC-2011283701

PATIENT
  Sex: Male
  Weight: 147 kg

DRUGS (3)
  1. LYRICA [Suspect]
     Indication: NEUROPATHY PERIPHERAL
     Dosage: 50 MG, DAILY
     Route: 048
     Dates: start: 20110101
  2. EFFEXOR XR [Concomitant]
     Dosage: UNK
     Route: 048
  3. CYMBALTA [Concomitant]
     Dosage: UNK

REACTIONS (9)
  - MOOD SWINGS [None]
  - OEDEMA PERIPHERAL [None]
  - SKIN DISCOLOURATION [None]
  - NAUSEA [None]
  - BEDRIDDEN [None]
  - DEPRESSION [None]
  - SPEECH DISORDER [None]
  - MYALGIA [None]
  - EATING DISORDER [None]
